FAERS Safety Report 12430620 (Version 1)
Quarter: 2016Q2

REPORT INFORMATION
  Report Type: Spontaneous
  Country: CH (occurrence: CH)
  Receive Date: 20160602
  Receipt Date: 20160602
  Transmission Date: 20160815
  Serious: Yes (Other)
  Sender: FDA-Public Use
  Company Number: CH-BAXALTA-2016BLT002632

PATIENT
  Sex: Male
  Weight: 72 kg

DRUGS (1)
  1. ADVATE [Suspect]
     Active Substance: ANTIHEMOPHILIC FACTOR, HUMAN RECOMBINANT
     Indication: PRODUCT USED FOR UNKNOWN INDICATION
     Dosage: 2000 IU, ONCE
     Route: 065
     Dates: start: 20150821

REACTIONS (3)
  - Drug ineffective [Recovered/Resolved]
  - Arthropathy [Unknown]
  - Abasia [Unknown]

NARRATIVE: CASE EVENT DATE: 20150821
